FAERS Safety Report 5012832-X (Version None)
Quarter: 2006Q2

REPORT INFORMATION
  Report Type: 
  Country: None (occurrence: None)
  Receive Date: 20060530
  Receipt Date: 20060411
  Transmission Date: 20061013
  Serious: No
  Sender: FDA-Public Use
  Company Number: US-BRISTOL-MYERS SQUIBB COMPANY-13343595

PATIENT
  Sex: Female

DRUGS (3)
  1. ERBITUX [Suspect]
     Indication: NEOPLASM MALIGNANT
     Route: 042
     Dates: start: 20060410, end: 20060410
  2. RADIATION THERAPY [Concomitant]
     Indication: NEOPLASM MALIGNANT
  3. BIAFINE [Concomitant]

REACTIONS (1)
  - RASH PRURITIC [None]
